FAERS Safety Report 8935281 (Version 3)
Quarter: 2014Q1

REPORT INFORMATION
  Report Type: Spontaneous
  Country: US (occurrence: US)
  Receive Date: 20121129
  Receipt Date: 20140123
  Transmission Date: 20141002
  Serious: Yes (Other)
  Sender: FDA-Public Use
  Company Number: US-PFIZER INC-2012298714

PATIENT
  Age: 64 Year
  Sex: Female
  Weight: 58.96 kg

DRUGS (16)
  1. LYRICA [Suspect]
     Indication: FIBROMYALGIA
     Dosage: 25 MG, 1X/DAY (QHS)
     Dates: start: 20090414
  2. LYRICA [Suspect]
     Dosage: 50 MG, 1X/DAY (QHS)
     Route: 048
  3. LYRICA [Suspect]
     Dosage: 75 MG, 2X/DAY
     Route: 048
     Dates: start: 20120130
  4. LYRICA [Suspect]
     Dosage: 100 MG, 1X/DAY (25 MG+ 75 QHS)
  5. LYRICA [Suspect]
     Dosage: 200 MG, UNK
     Dates: end: 20120910
  6. LYRICA [Suspect]
     Dosage: 25 MG, WEEKLY
  7. BUMEX [Concomitant]
     Indication: DIURETIC THERAPY
     Dosage: 0.5 MG, UNK
  8. BENICAR [Concomitant]
     Indication: CARDIAC DISORDER
     Dosage: 40 MG, DAILY
     Route: 048
     Dates: start: 20100626
  9. BENICAR [Concomitant]
     Indication: HYPERTENSION
     Dosage: 40 MG, UNK
     Dates: start: 20100912
  10. BENICAR [Concomitant]
     Dosage: 40 MG, UNK
     Dates: start: 20110122
  11. BENICAR [Concomitant]
     Dosage: 40 MG, UNK
     Dates: start: 20110709
  12. BENICAR [Concomitant]
     Dosage: 0.5 MG, UNK
     Dates: start: 20111007
  13. ASPIRIN [Concomitant]
     Dosage: 81 MG, DAILY
  14. NEXIUM [Concomitant]
     Indication: GASTRIC DISORDER
     Dosage: UNK,DAILY
  15. SKELAXIN [Concomitant]
     Dosage: 800 MG, 2X/DAY
  16. MOBIC [Concomitant]
     Dosage: 7.5 MG, 2X/DAY

REACTIONS (29)
  - Aphagia [Unknown]
  - Suicide attempt [Unknown]
  - Panic attack [Unknown]
  - Nervous system disorder [Unknown]
  - Anxiety [Recovered/Resolved with Sequelae]
  - Visual impairment [Unknown]
  - Balance disorder [Unknown]
  - Suicidal ideation [Recovered/Resolved]
  - Local swelling [Not Recovered/Not Resolved]
  - Abdominal pain upper [Unknown]
  - Diarrhoea [Unknown]
  - Vomiting [Unknown]
  - Chills [Unknown]
  - Weight decreased [Unknown]
  - Nervousness [Unknown]
  - Feeling abnormal [Unknown]
  - Insomnia [Not Recovered/Not Resolved]
  - Abnormal behaviour [Unknown]
  - Muscle spasms [Not Recovered/Not Resolved]
  - Fatigue [Unknown]
  - Dry mouth [Unknown]
  - Pain [Unknown]
  - Feeling abnormal [Unknown]
  - Pollakiuria [Unknown]
  - Tremor [Unknown]
  - Mental status changes [Recovered/Resolved]
  - Aggression [Unknown]
  - Activities of daily living impaired [Unknown]
  - Decreased appetite [Unknown]
